FAERS Safety Report 10207339 (Version 3)
Quarter: 2014Q2

REPORT INFORMATION
  Report Type: Report from Study
  Country: CA (occurrence: CA)
  Receive Date: 20140530
  Receipt Date: 20140610
  Transmission Date: 20141212
  Serious: Yes (Other)
  Sender: FDA-Public Use
  Company Number: CA-ABBVIE-14P-028-1215380-00

PATIENT
  Age: 50 Year
  Sex: Female
  Weight: 74.91 kg

DRUGS (8)
  1. HUMIRA [Suspect]
     Indication: CROHN^S DISEASE
     Route: 058
     Dates: start: 20120425
  2. HUMIRA [Suspect]
     Dates: start: 201109
  3. HUMIRA [Suspect]
     Dates: end: 2014
  4. HUMIRA [Suspect]
     Route: 058
     Dates: start: 20140521
  5. PAXIL [Concomitant]
     Indication: DEPRESSION
     Route: 048
  6. WELLBUTRIN [Concomitant]
     Indication: DEPRESSION
     Route: 048
     Dates: start: 2010
  7. ARTHROTEC [Concomitant]
     Indication: ARTHRITIS
     Route: 048
     Dates: start: 2004
  8. VYVANSE [Concomitant]
     Indication: ATTENTION DEFICIT/HYPERACTIVITY DISORDER
     Route: 048
     Dates: start: 2013

REACTIONS (7)
  - Pain in jaw [Recovered/Resolved]
  - Post procedural infection [Recovered/Resolved]
  - Nasopharyngitis [Recovered/Resolved]
  - Swollen tongue [Recovering/Resolving]
  - Swelling face [Recovering/Resolving]
  - Lymph node pain [Recovering/Resolving]
  - Crohn^s disease [Recovering/Resolving]
